FAERS Safety Report 10897210 (Version 1)
Quarter: 2015Q1

REPORT INFORMATION
  Report Type: Spontaneous
  Country: US (occurrence: US)
  Receive Date: 20150309
  Receipt Date: 20150309
  Transmission Date: 20150721
  Serious: No
  Sender: FDA-Public Use
  Company Number: US-PFIZER INC-2015080285

PATIENT
  Age: 37 Year
  Sex: Male
  Weight: 59 kg

DRUGS (1)
  1. VIAGRA [Suspect]
     Active Substance: SILDENAFIL CITRATE
     Dosage: ONE PILL

REACTIONS (1)
  - Ejaculation failure [Unknown]

NARRATIVE: CASE EVENT DATE: 20150302
